FAERS Safety Report 10984214 (Version 1)
Quarter: 2015Q2

REPORT INFORMATION
  Report Type: Spontaneous
  Country: BR (occurrence: BR)
  Receive Date: 20150403
  Receipt Date: 20150403
  Transmission Date: 20150821
  Serious: Yes (Other)
  Sender: FDA-Public Use
  Company Number: BR-ASTRAZENECA-2015SE28747

PATIENT
  Age: 730 Month
  Sex: Female
  Weight: 59 kg

DRUGS (6)
  1. SELOZOK [Suspect]
     Active Substance: METOPROLOL SUCCINATE
     Route: 048
     Dates: start: 201412, end: 201502
  2. DIGOXIN. [Concomitant]
     Active Substance: DIGOXIN
     Dosage: 1/2 TABLET
     Dates: start: 2003
  3. DIOVAN [Concomitant]
     Active Substance: VALSARTAN
     Dosage: DAILY
     Dates: start: 2003
  4. ALDAZIDE [Concomitant]
     Dosage: DAILY
     Dates: start: 2003
  5. SELOZOK [Suspect]
     Active Substance: METOPROLOL SUCCINATE
     Route: 048
     Dates: start: 201502
  6. MAREVAN [Concomitant]
     Active Substance: WARFARIN SODIUM
     Dates: start: 2003

REACTIONS (4)
  - Haemorrhoids [Not Recovered/Not Resolved]
  - Malaise [Unknown]
  - Faeces hard [Unknown]
  - Off label use [Recovered/Resolved]

NARRATIVE: CASE EVENT DATE: 201502
